FAERS Safety Report 25080792 (Version 4)
Quarter: 2025Q2

REPORT INFORMATION
  Report Type: Report from Study
  Country: US (occurrence: US)
  Receive Date: 20250315
  Receipt Date: 20250518
  Transmission Date: 20250716
  Serious: Yes (Other)
  Sender: ABBVIE
  Company Number: US-ABBVIE-6171727

PATIENT
  Age: 54 Year
  Sex: Female
  Weight: 103 kg

DRUGS (4)
  1. RINVOQ [Suspect]
     Active Substance: UPADACITINIB
     Indication: Rheumatoid arthritis
     Dosage: FORM STRENGTH: 15 MILLIGRAMS
     Route: 048
     Dates: start: 20241220
  2. RINVOQ [Suspect]
     Active Substance: UPADACITINIB
     Indication: Rheumatoid arthritis
     Route: 048
     Dates: start: 20250331
  3. TOPIRAMATE [Concomitant]
     Active Substance: TOPIRAMATE
     Indication: Depression
  4. PANTOPRAZOLE [Concomitant]
     Active Substance: PANTOPRAZOLE
     Indication: Gastrooesophageal reflux disease

REACTIONS (9)
  - Medical device battery replacement [Recovering/Resolving]
  - Neuralgia [Unknown]
  - Spinal nerve stimulator implantation [Unknown]
  - Pain [Recovered/Resolved]
  - Skin reaction [Unknown]
  - Ear infection [Recovering/Resolving]
  - Dermatitis contact [Recovering/Resolving]
  - Medical device site pain [Unknown]
  - Arthralgia [Unknown]

NARRATIVE: CASE EVENT DATE: 20250305
